FAERS Safety Report 25974456 (Version 1)
Quarter: 2025Q4

REPORT INFORMATION
  Report Type: Spontaneous
  Country: US (occurrence: None)
  Receive Date: 20251029
  Receipt Date: 20251029
  Transmission Date: 20260117
  Serious: Yes (Hospitalization)
  Sender: FDA-CTU
  Company Number: None

PATIENT
  Sex: Female

DRUGS (9)
  1. GAMMAGARD LIQUID [Suspect]
     Active Substance: HUMAN IMMUNOGLOBULIN G
     Indication: Hypogammaglobulinaemia
     Dosage: OTHER STRENGTH : 30GM/300M;?OTHER FREQUENCY : EVERY 4 WEEKS;?
     Route: 042
  2. HYQVIA [Concomitant]
     Active Substance: HUMAN IMMUNOGLOBULIN G\HYALURONIDASE (HUMAN RECOMBINANT)
  3. SODIUM CHLOR INJ (1000ML/BAG) [Concomitant]
  4. NORMAL SALINE FLUSH (5ML) [Concomitant]
  5. SOD CHLOR POS STERILE F (10ML) [Concomitant]
  6. BLUNT FILTER NEEDL 18GX1-1/2 [Concomitant]
  7. HEPARIN L/L FLUSH SYR (5ML) [Concomitant]
  8. DIPHENHYDRAMINE [Concomitant]
     Active Substance: DIPHENHYDRAMINE
  9. GAMMAGARD LIQUID [Concomitant]
     Active Substance: HUMAN IMMUNOGLOBULIN G

REACTIONS (3)
  - Myalgia [None]
  - Influenza like illness [None]
  - Arthralgia [None]
